FAERS Safety Report 21506446 (Version 1)
Quarter: 2022Q4

REPORT INFORMATION
  Report Type: Spontaneous
  Country: IL (occurrence: IL)
  Receive Date: 20221026
  Receipt Date: 20221026
  Transmission Date: 20230113
  Serious: Yes (Hospitalization)
  Sender: FDA-Public Use
  Company Number: IL-STRIDES ARCOLAB LIMITED-2022SP009819

PATIENT
  Age: 23 Year
  Sex: Female
  Weight: 53 kg

DRUGS (13)
  1. TACROLIMUS [Interacting]
     Active Substance: TACROLIMUS
     Indication: Renal transplant
     Dosage: 2 MILLIGRAM, BID (4 MILLIGRAM PER DAY,(BASELINE)
     Route: 048
  2. TACROLIMUS [Interacting]
     Active Substance: TACROLIMUS
     Dosage: 3 MILLIGRAM PER DAY (STARTED ON 10-JAN-2022)
     Route: 048
  3. TACROLIMUS [Interacting]
     Active Substance: TACROLIMUS
     Dosage: 2 MILLIGRAM PER DAY (STARTED ON 12-JAN-2022)
     Route: 048
  4. TACROLIMUS [Interacting]
     Active Substance: TACROLIMUS
     Dosage: 1 MILLIGRAM PER DAY (STARTED ON 11-JAN-2022)
     Route: 048
  5. TACROLIMUS [Interacting]
     Active Substance: TACROLIMUS
     Dosage: 0.5 MILLIGRAM PER DAY (STARTED ON 15-JAN-2022)
     Route: 048
  6. TACROLIMUS [Interacting]
     Active Substance: TACROLIMUS
     Dosage: 1 MILLIGRAM, BID (2 MILLIGRAM PER DAY (STARTED ON 13-JAN-2022))
     Route: 048
  7. TACROLIMUS [Interacting]
     Active Substance: TACROLIMUS
     Dosage: 1 MILLIGRAM PER DAY (STARTED ON 14-JAN-2022)
     Route: 048
  8. PREDNISOLONE [Suspect]
     Active Substance: PREDNISOLONE
     Indication: Renal transplant
     Dosage: 5 MILLIGRAM PER DAY
     Route: 048
     Dates: end: 202201
  9. PREDNISOLONE [Suspect]
     Active Substance: PREDNISOLONE
     Dosage: 10 MILLIGRAM PER DAY (STARTED ON JAN-2022)
     Route: 048
  10. PAXLOVID [Interacting]
     Active Substance: NIRMATRELVIR\RITONAVIR
     Indication: COVID-19
     Dosage: UNK, NIRMATRELVIR/RITONAVIR 300MG/100MG (STARTED ON 11-JAN-2022)
     Route: 048
  11. PAXLOVID [Interacting]
     Active Substance: NIRMATRELVIR\RITONAVIR
     Dosage: UNK, BID, NIRMATRELVIR+RITONAVIR 300MG+100MG; RECEIVED TWO DOSES
     Route: 048
  12. MYCOPHENOLIC ACID [Suspect]
     Active Substance: MYCOPHENOLIC ACID
     Indication: Renal transplant
     Dosage: 360 MILLIGRAM, BID
     Route: 048
     Dates: end: 202201
  13. CHOLECALCIFEROL [Concomitant]
     Active Substance: CHOLECALCIFEROL
     Indication: Vitamin supplementation
     Dosage: 1000 UNITS PER DAY
     Route: 048

REACTIONS (4)
  - Drug interaction [Unknown]
  - Drug level increased [Recovered/Resolved]
  - Blood creatinine increased [Recovered/Resolved]
  - COVID-19 [Unknown]

NARRATIVE: CASE EVENT DATE: 20220101
